FAERS Safety Report 19263221 (Version 1)
Quarter: 2021Q2

REPORT INFORMATION
  Report Type: Spontaneous
  Country: VN (occurrence: VN)
  Receive Date: 20210517
  Receipt Date: 20210517
  Transmission Date: 20210717
  Serious: Yes (Other)
  Sender: FDA-Public Use
  Company Number: VN-ROCHE-2826918

PATIENT
  Sex: Female

DRUGS (3)
  1. CAPECITABINE. [Suspect]
     Active Substance: CAPECITABINE
     Indication: PRODUCT USED FOR UNKNOWN INDICATION
     Route: 065
  2. OXALIPLATIN. [Suspect]
     Active Substance: OXALIPLATIN
     Indication: PRODUCT USED FOR UNKNOWN INDICATION
     Route: 065
  3. BEVACIZUMAB. [Concomitant]
     Active Substance: BEVACIZUMAB

REACTIONS (8)
  - Adenocarcinoma [Unknown]
  - Hepatic steatosis [Unknown]
  - Metastases to adrenals [Unknown]
  - Ascites [Unknown]
  - Skin papilloma [Unknown]
  - Pelvic fluid collection [Unknown]
  - Metastases to peritoneum [Unknown]
  - Ovarian cancer [Unknown]
